FAERS Safety Report 6921648-6 (Version None)
Quarter: 2010Q3

REPORT INFORMATION
  Report Type: 
  Country: None (occurrence: None)
  Receive Date: 20100812
  Receipt Date: 20100802
  Transmission Date: 20110219
  Serious: Yes (Hospitalization, Other)
  Sender: FDA-Public Use
  Company Number: US-ELI_LILLY_AND_COMPANY-US200902000105

PATIENT
  Sex: Female

DRUGS (9)
  1. ZYPREXA [Suspect]
     Indication: BIPOLAR DISORDER
     Dosage: 5 MG, DAILY (1/D)
  2. ZYPREXA [Suspect]
     Dosage: 2.5 MG, DAILY (1/D)
     Dates: start: 19960101
  3. GLUCOPHAGE [Concomitant]
     Indication: DIABETES MELLITUS
  4. AMARYL [Concomitant]
     Indication: DIABETES MELLITUS
  5. SEROQUEL [Concomitant]
  6. VALPROIC ACID [Concomitant]
  7. KLONOPIN [Concomitant]
  8. RISPERDAL [Concomitant]
  9. ABILIFY [Concomitant]

REACTIONS (8)
  - CARDIAC DISORDER [None]
  - CONFUSIONAL STATE [None]
  - DIABETES MELLITUS [None]
  - DIARRHOEA [None]
  - FEELING ABNORMAL [None]
  - HOSPITALISATION [None]
  - INTESTINAL FUNCTIONAL DISORDER [None]
  - WEIGHT INCREASED [None]
